FAERS Safety Report 19436499 (Version 1)
Quarter: 2021Q2

REPORT INFORMATION
  Report Type: Spontaneous
  Country: US (occurrence: US)
  Receive Date: 20210618
  Receipt Date: 20210618
  Transmission Date: 20210717
  Serious: No
  Sender: FDA-Public Use
  Company Number: US-PERRIGO-20US010616

PATIENT
  Sex: Female

DRUGS (1)
  1. LANSOPRAZOLE. [Suspect]
     Active Substance: LANSOPRAZOLE
     Indication: PRODUCT USED FOR UNKNOWN INDICATION
     Dosage: UNKNOWN, UNKNOWN
     Route: 048

REACTIONS (38)
  - Vitamin B12 abnormal [Unknown]
  - Anal haemorrhage [Unknown]
  - Abdominal pain upper [Unknown]
  - Gastrointestinal inflammation [Unknown]
  - Anaemia [Unknown]
  - Arthralgia [Unknown]
  - Palpitations [Unknown]
  - Blood potassium increased [Unknown]
  - Weight increased [Unknown]
  - Bursitis [Unknown]
  - Chest discomfort [Unknown]
  - Restless legs syndrome [Unknown]
  - Urinary retention [Unknown]
  - Blood urine present [Unknown]
  - Dyspepsia [Unknown]
  - Pruritus [Unknown]
  - Pollakiuria [Unknown]
  - Renal impairment [Unknown]
  - Blood magnesium decreased [Unknown]
  - Deafness [Unknown]
  - Tinnitus [Unknown]
  - Gastric perforation [Unknown]
  - Insomnia [Unknown]
  - Eructation [Unknown]
  - Confusional state [Unknown]
  - Contusion [Unknown]
  - Fluid retention [Unknown]
  - Hypertension [Unknown]
  - Asthenia [Unknown]
  - Dysphonia [Unknown]
  - Ocular discomfort [Unknown]
  - Incorrect product administration duration [Unknown]
  - Vaginal infection [Unknown]
  - Headache [Unknown]
  - Arthritis [Unknown]
  - Throat tightness [Unknown]
  - Anxiety [Unknown]
  - Appetite disorder [Unknown]
